FAERS Safety Report 6296433-1 (Version None)
Quarter: 2009Q3

REPORT INFORMATION
  Report Type: 
  Country: None (occurrence: None)
  Receive Date: 20090804
  Receipt Date: 20090728
  Transmission Date: 20100115
  Serious: Yes (Other)
  Sender: FDA-Public Use
  Company Number: IT-AMGEN-UK357765

PATIENT
  Sex: Female
  Weight: 68 kg

DRUGS (4)
  1. VECTIBIX [Suspect]
     Indication: COLORECTAL CANCER
     Route: 042
     Dates: start: 20081217, end: 20090527
  2. RAMIPRIL [Concomitant]
     Route: 048
  3. PARACETAMOL [Concomitant]
     Route: 048
  4. DIURETICS [Concomitant]
     Route: 048

REACTIONS (1)
  - FOLLICULITIS [None]
